FAERS Safety Report 10227289 (Version 1)
Quarter: 2014Q2

REPORT INFORMATION
  Report Type: Spontaneous
  Country: US (occurrence: None)
  Receive Date: 20140609
  Receipt Date: 20140609
  Transmission Date: 20141212
  Serious: No
  Sender: FDA-Public Use
  Company Number: None

PATIENT
  Age: 75 Year
  Sex: Male

DRUGS (1)
  1. ZYTIGA [Suspect]
     Indication: PROSTATE CANCER
     Route: 048
     Dates: end: 20130523

REACTIONS (5)
  - Kidney infection [None]
  - Consciousness fluctuating [None]
  - Anaemia [None]
  - Disorientation [None]
  - Unevaluable event [None]
